FAERS Safety Report 7960062-1 (Version None)
Quarter: 2011Q4

REPORT INFORMATION
  Report Type: 
  Country: None (occurrence: None)
  Receive Date: 20111206
  Receipt Date: 20111202
  Transmission Date: 20120403
  Serious: Yes (Other)
  Sender: FDA-Public Use
  Company Number: US-PFIZER INC-2011294966

PATIENT
  Sex: Female
  Weight: 61.67 kg

DRUGS (1)
  1. EFFEXOR XR [Suspect]
     Indication: DEPRESSION
     Dosage: 225 MG, 1X/DAY
     Route: 048
     Dates: start: 19970101

REACTIONS (3)
  - VERTIGO [None]
  - DIZZINESS [None]
  - IMPAIRED DRIVING ABILITY [None]
